FAERS Safety Report 9333381 (Version 1)
Quarter: 2013Q2

REPORT INFORMATION
  Report Type: Spontaneous
  Country: GB (occurrence: GB)
  Receive Date: 20130606
  Receipt Date: 20130606
  Transmission Date: 20140414
  Serious: Yes (Hospitalization)
  Sender: FDA-Public Use
  Company Number: GB-TEVA-408797ISR

PATIENT
  Sex: 0
  Weight: 98 kg

DRUGS (2)
  1. RISPERIDONE [Suspect]
     Indication: POST-TRAUMATIC STRESS DISORDER
     Dates: start: 2011, end: 2013
  2. CITALOPRAM [Concomitant]
     Indication: POST-TRAUMATIC STRESS DISORDER
     Dosage: STILL TAKING

REACTIONS (8)
  - Syncope [Recovered/Resolved]
  - Psychotic disorder [Recovered/Resolved]
  - Memory impairment [Recovered/Resolved]
  - Confusional state [Recovered/Resolved]
  - Emotional distress [Recovered/Resolved]
  - Irritability [Recovered/Resolved]
  - Pain in extremity [Recovered/Resolved]
  - Chest pain [Recovered/Resolved]
